FAERS Safety Report 8351704-X (Version None)
Quarter: 2012Q2

REPORT INFORMATION
  Report Type: 
  Country: None (occurrence: None)
  Receive Date: 20120511
  Receipt Date: 20120502
  Transmission Date: 20120825
  Serious: No
  Sender: FDA-Public Use
  Company Number: US-BIOGENIDEC-2012BI015699

PATIENT
  Age: 36 Year
  Sex: Female

DRUGS (1)
  1. TYSABRI [Suspect]
     Indication: ACCIDENTAL EXPOSURE
     Dates: start: 20120502, end: 20120502

REACTIONS (2)
  - ACCIDENTAL EXPOSURE [None]
  - DIZZINESS [None]
